FAERS Safety Report 15929391 (Version 2)
Quarter: 2019Q1

REPORT INFORMATION
  Report Type: Report from Study
  Country: CO (occurrence: CO)
  Receive Date: 20190206
  Receipt Date: 20190215
  Transmission Date: 20190417
  Serious: Yes (Other)
  Sender: FDA-Public Use
  Company Number: PHHY2018CO200926

PATIENT
  Sex: Female
  Weight: 58 kg

DRUGS (4)
  1. REVOLADE [Suspect]
     Active Substance: ELTROMBOPAG
     Indication: APLASTIC ANAEMIA
     Dosage: 1 DF, QD
     Route: 048
     Dates: start: 20180508
  2. REVOLADE [Suspect]
     Active Substance: ELTROMBOPAG
     Dosage: 1 DF, QD
     Route: 048
  3. REVOLADE [Suspect]
     Active Substance: ELTROMBOPAG
     Dosage: 2 DF, QD
     Route: 048
     Dates: start: 201808
  4. FERROUS SULFATE. [Concomitant]
     Active Substance: FERROUS SULFATE
     Indication: PRODUCT USED FOR UNKNOWN INDICATION
     Route: 065

REACTIONS (2)
  - Vaginal haemorrhage [Recovered/Resolved]
  - Platelet count decreased [Recovered/Resolved]
